FAERS Safety Report 19472721 (Version 1)
Quarter: 2021Q2

REPORT INFORMATION
  Report Type: Spontaneous
  Country: DE (occurrence: DE)
  Receive Date: 20210629
  Receipt Date: 20210629
  Transmission Date: 20210717
  Serious: Yes (Other)
  Sender: FDA-Public Use
  Company Number: NVSC2021DE139478

PATIENT
  Sex: Male

DRUGS (8)
  1. PANTOPRAZOL [Suspect]
     Active Substance: PANTOPRAZOLE SODIUM
     Indication: PROPHYLAXIS
     Dosage: UNK
     Route: 065
  2. VITAMIN B1 RATIOPHARM [Suspect]
     Active Substance: THIAMINE HYDROCHLORIDE
     Indication: MUSCLE DISCOMFORT
     Dosage: 200 MG,QD (WIRD SEIT EINIGER ZEIT EINGENOMMEN)
     Route: 065
  3. PANTOPRAZOL NYC [Suspect]
     Active Substance: PANTOPRAZOLE SODIUM
     Indication: PROPHYLAXIS
  4. PANTOPRAZOL RATIOPHARM [Suspect]
     Active Substance: PANTOPRAZOLE SODIUM
     Indication: GASTROOESOPHAGEAL REFLUX PROPHYLAXIS
     Dosage: UNK
     Route: 065
  5. PANTOPRAZOL NYC [Suspect]
     Active Substance: PANTOPRAZOLE SODIUM
     Indication: GASTROOESOPHAGEAL REFLUX PROPHYLAXIS
     Dosage: UNK
     Route: 065
  6. CORTISON [Concomitant]
     Active Substance: CORTISONE ACETATE
     Indication: POLYMYALGIA RHEUMATICA
     Dosage: UNK
     Route: 065
  7. PANTOPRAZOL [Suspect]
     Active Substance: PANTOPRAZOLE SODIUM
     Indication: GASTROOESOPHAGEAL REFLUX PROPHYLAXIS
  8. PANTOPRAZOL RATIOPHARM [Suspect]
     Active Substance: PANTOPRAZOLE SODIUM
     Indication: PROPHYLAXIS

REACTIONS (7)
  - Arthropathy [Unknown]
  - Vitamin B1 deficiency [Unknown]
  - Muscle atrophy [Unknown]
  - Tendon rupture [Unknown]
  - Muscle strength abnormal [Unknown]
  - Mobility decreased [Unknown]
  - Malabsorption [Unknown]

NARRATIVE: CASE EVENT DATE: 2018
